FAERS Safety Report 8054141-0 (Version None)
Quarter: 2012Q1

REPORT INFORMATION
  Report Type: 
  Country: None (occurrence: None)
  Receive Date: 20120118
  Receipt Date: 20120112
  Transmission Date: 20120608
  Serious: Yes (Hospitalization, Disabling)
  Sender: FDA-Public Use
  Company Number: DE-PFIZER INC-2011298582

PATIENT
  Age: 75 Year
  Sex: Female
  Weight: 72 kg

DRUGS (5)
  1. NOVALGIN [Concomitant]
  2. LEVOTHYROXINE SODIUM [Concomitant]
     Dosage: 150/75
  3. PANTOZOL [Concomitant]
  4. FERROUS SULFATE TAB [Concomitant]
     Dosage: UNK
     Dates: end: 20110928
  5. TEMSIROLIMUS [Suspect]
     Indication: RENAL CANCER METASTATIC
     Dosage: 25 MG, WEEKLY
     Route: 042
     Dates: start: 20110928, end: 20110928

REACTIONS (2)
  - RENAL IMPAIRMENT [None]
  - RENAL FAILURE [None]
